FAERS Safety Report 6185601-5 (Version None)
Quarter: 2009Q2

REPORT INFORMATION
  Report Type: 
  Country: None (occurrence: None)
  Receive Date: 20090507
  Receipt Date: 20090422
  Transmission Date: 20091009
  Serious: Yes (Hospitalization)
  Sender: FDA-Public Use
  Company Number: ESP09000057

PATIENT
  Age: 33 Year
  Sex: Female

DRUGS (11)
  1. RISEDRONATE SODIUM [Suspect]
     Indication: OSTEOPENIA
     Dosage: 35MG, 1/WEEK
     Dates: start: 20081201, end: 20090212
  2. CASSIA ANGUSTIFOLIA (SENNA ALEXANDRINA) [Suspect]
     Dates: start: 20081201, end: 20090212
  3. AMERIDE /00206601/ (AMILORIDE HYDROCHLORIDE, HYDROCHLOROTHIAZIDE) TABL [Suspect]
     Dates: start: 20081201, end: 20090212
  4. NATECAL D (CALCIUM CARBONATE, COLECALCIFEROL) [Suspect]
     Indication: OSTEOPENIA
     Dates: start: 20081201, end: 20090212
  5. ARANESP [Concomitant]
  6. CIDINE /01065602/ (CINITAPRIDE TARTRATE) [Concomitant]
  7. LEVEMIR [Concomitant]
  8. MICARDIS [Concomitant]
  9. PREVENCOR /01326102/ (ATORVASTATIN CALCIUM) [Concomitant]
  10. RENITEC /00574902/ (ENALAPRIL MALEATE) [Concomitant]
  11. TARDYFERON /00023503/ (FERROUS SULFATE) [Concomitant]

REACTIONS (8)
  - DIARRHOEA [None]
  - HAEMODIALYSIS [None]
  - HYPOPHAGIA [None]
  - HYPOVOLAEMIC SHOCK [None]
  - NEPHROCALCINOSIS [None]
  - RENAL FAILURE ACUTE [None]
  - TUBULOINTERSTITIAL NEPHRITIS [None]
  - VOMITING [None]
